FAERS Safety Report 10081087 (Version 16)
Quarter: 2015Q4

REPORT INFORMATION
  Report Type: Spontaneous
  Country: US (occurrence: US)
  Receive Date: 20140416
  Receipt Date: 20151106
  Transmission Date: 20160304
  Serious: Yes (Death, Hospitalization, Other)
  Sender: FDA-Public Use
  Company Number: US-SA-2014SA043434

PATIENT
  Age: 62 Year
  Sex: Female
  Weight: 62.14 kg

DRUGS (49)
  1. PLAVIX [Suspect]
     Active Substance: CLOPIDOGREL BISULFATE
     Indication: PROPHYLAXIS
     Route: 048
     Dates: start: 20040702, end: 20110409
  2. CELEBREX [Concomitant]
     Active Substance: CELECOXIB
  3. ZANTAC [Concomitant]
     Active Substance: RANITIDINE HYDROCHLORIDE
  4. CETIRIZINE [Concomitant]
     Active Substance: CETIRIZINE HYDROCHLORIDE
  5. FENOFIBRATE. [Concomitant]
     Active Substance: FENOFIBRATE
     Route: 048
     Dates: end: 20110410
  6. CHANTIX [Concomitant]
     Active Substance: VARENICLINE TARTRATE
  7. TRI-CHLOR [Concomitant]
     Active Substance: TRICHLOROACETIC ACID
  8. VICODIN [Concomitant]
     Active Substance: ACETAMINOPHEN\HYDROCODONE BITARTRATE
  9. NIFEDIPINE. [Concomitant]
     Active Substance: NIFEDIPINE
     Indication: HYPERTENSION
     Dates: end: 20110410
  10. ACCUPRIL [Concomitant]
     Active Substance: QUINAPRIL HYDROCHLORIDE
     Route: 048
  11. PULMICORT TURBUHALER [Concomitant]
     Active Substance: BUDESONIDE
  12. NTG [Concomitant]
     Active Substance: NITROGLYCERIN
  13. ADALAT [Concomitant]
     Active Substance: NIFEDIPINE
  14. PROPOXYPHENE. [Concomitant]
     Active Substance: PROPOXYPHENE
  15. ISOSORBIDE MONONITRATE. [Concomitant]
     Active Substance: ISOSORBIDE MONONITRATE
     Dosage: AT BEDTIME
     Dates: end: 20110409
  16. NAPROSYN [Concomitant]
     Active Substance: NAPROXEN
     Indication: PAIN
     Dosage: 500MG WITH FOOD
     Dates: start: 20070223
  17. KETEK [Concomitant]
     Active Substance: TELITHROMYCIN
  18. CELEXA [Concomitant]
     Active Substance: CITALOPRAM HYDROBROMIDE
  19. PROTONIX [Concomitant]
     Active Substance: PANTOPRAZOLE SODIUM
     Route: 048
  20. NEXIUM [Concomitant]
     Active Substance: ESOMEPRAZOLE MAGNESIUM
  21. SPIRIVA [Concomitant]
     Active Substance: TIOTROPIUM BROMIDE MONOHYDRATE
     Dosage: DOSE:2 PUFF(S)
     Route: 055
     Dates: end: 20110410
  22. TRILIPIX [Concomitant]
     Active Substance: FENOFIBRIC ACID
     Route: 048
  23. HYDROCODONE [Concomitant]
     Active Substance: HYDROCODONE
  24. COLACE [Concomitant]
     Active Substance: DOCUSATE SODIUM
  25. QUINAPRIL [Concomitant]
     Active Substance: QUINAPRIL\QUINAPRIL HYDROCHLORIDE
     Indication: HYPERTENSION
     Dates: end: 20110410
  26. ASPIRIN. [Concomitant]
     Active Substance: ASPIRIN
     Indication: CARDIAC DISORDER
     Route: 048
     Dates: end: 20110409
  27. NASONEX [Concomitant]
     Active Substance: MOMETASONE FUROATE
     Indication: HYPERSENSITIVITY
     Dosage: INHALER NASAL SPRAY
  28. SOTALOL. [Concomitant]
     Active Substance: SOTALOL
     Route: 048
     Dates: end: 20110410
  29. TRICOR [Concomitant]
     Active Substance: FENOFIBRATE
  30. ZETIA [Concomitant]
     Active Substance: EZETIMIBE
  31. VITAMIN D [Concomitant]
     Active Substance: CHOLECALCIFEROL
     Dosage: FREQUENCY: PM
  32. CLARITIN [Concomitant]
     Active Substance: LORATADINE
     Indication: CHRONIC OBSTRUCTIVE PULMONARY DISEASE
  33. LIPITOR [Concomitant]
     Active Substance: ATORVASTATIN CALCIUM
     Dosage: AT BEDTIME
     Route: 048
     Dates: end: 20110409
  34. PREMARIN [Concomitant]
     Active Substance: ESTROGENS, CONJUGATED
     Dosage: 0.9
  35. WELLBUTRIN [Concomitant]
     Active Substance: BUPROPION HYDROCHLORIDE
     Dosage: DOSE: 50
  36. PROVENTIL [Concomitant]
     Active Substance: ALBUTEROL
     Indication: DYSPNOEA
     Dosage: INHALER
  37. NORCO [Concomitant]
     Active Substance: ACETAMINOPHEN\HYDROCODONE BITARTRATE
     Dosage: DOSE: 5MG;325MG
     Dates: start: 20070223
  38. TOPROL XL [Concomitant]
     Active Substance: METOPROLOL SUCCINATE
  39. MECLIZINE [Concomitant]
     Active Substance: MECLIZINE\MECLIZINE HYDROCHLORIDE
     Dosage: EVERY 8 HOURS
  40. PRAVACHOL [Concomitant]
     Active Substance: PRAVASTATIN SODIUM
  41. CALCIUM [Concomitant]
     Active Substance: CALCIUM
     Indication: NUTRITIONAL SUPPLEMENTATION
  42. PLAVIX [Suspect]
     Active Substance: CLOPIDOGREL BISULFATE
     Indication: PERIPHERAL ARTERIAL OCCLUSIVE DISEASE
     Route: 048
     Dates: start: 20040702, end: 20110409
  43. ADVAIR DISKUS [Concomitant]
     Active Substance: FLUTICASONE PROPIONATE\SALMETEROL XINAFOATE
     Dosage: STRENGTH: 250/50 DOSE:1 PUFF(S)
     Route: 055
  44. NITROSTAT [Concomitant]
     Active Substance: NITROGLYCERIN
     Dosage: SUBLINGUAL
  45. VITAMINS NOS/MINERALS NOS [Concomitant]
  46. TYLENOL [Concomitant]
     Active Substance: ACETAMINOPHEN
  47. ALBUTEROL. [Concomitant]
     Active Substance: ALBUTEROL
     Indication: WHEEZING
     Dosage: 1-2 PUFFS EVERY 4-6 HOURS. DOSE:1 PUFF(S)
     Route: 055
  48. IMDUR [Concomitant]
     Active Substance: ISOSORBIDE MONONITRATE
  49. COMBIVENT [Concomitant]
     Active Substance: ALBUTEROL SULFATE\IPRATROPIUM BROMIDE
     Dosage: INHALOR

REACTIONS (5)
  - Economic problem [Not Recovered/Not Resolved]
  - Gastrointestinal haemorrhage [Not Recovered/Not Resolved]
  - Death [Fatal]
  - Loss of employment [Not Recovered/Not Resolved]
  - Injury [Not Recovered/Not Resolved]

NARRATIVE: CASE EVENT DATE: 20110408
